FAERS Safety Report 6100563-4 (Version None)
Quarter: 2009Q1

REPORT INFORMATION
  Report Type: 
  Country: None (occurrence: None)
  Receive Date: 20090303
  Receipt Date: 20090218
  Transmission Date: 20090719
  Serious: Yes (Hospitalization)
  Sender: FDA-Public Use
  Company Number: US-ROCHE-617154

PATIENT
  Sex: Male

DRUGS (7)
  1. PEG-INTERFERON ALFA 2A (RO 25-8310) [Suspect]
     Indication: HEPATITIS C
     Route: 058
     Dates: start: 20081217, end: 20090211
  2. VX-950 [Suspect]
     Indication: HEPATITIS C
     Route: 048
     Dates: start: 20081217, end: 20090211
  3. RIBAVIRIN [Suspect]
     Indication: HEPATITIS C
     Dosage: 600 MG EVERY AM 400 MG EVERY PM
     Route: 048
     Dates: start: 20081217, end: 20090212
  4. RIBAVIRIN [Suspect]
     Dosage: 400MG EVERY AM 200 MG EVERY PM
     Route: 048
     Dates: start: 20090213, end: 20090217
  5. ALEVE [Concomitant]
     Indication: HEADACHE
  6. ROZEREM [Concomitant]
     Indication: INSOMNIA
  7. BENADRYL [Concomitant]
     Indication: RASH
     Dates: start: 20090210

REACTIONS (2)
  - COGNITIVE DISORDER [None]
  - DYSPNOEA [None]
